FAERS Safety Report 12336415 (Version 1)
Quarter: 2016Q2

REPORT INFORMATION
  Report Type: Spontaneous
  Country: US (occurrence: US)
  Receive Date: 20160505
  Receipt Date: 20160505
  Transmission Date: 20160815
  Serious: Yes (Hospitalization, Other)
  Sender: FDA-Public Use
  Company Number: US-AMGEN-USASP2016056764

PATIENT
  Age: 15 Year
  Sex: Female

DRUGS (1)
  1. EPOGEN [Suspect]
     Active Substance: ERYTHROPOIETIN
     Indication: PRODUCT USED FOR UNKNOWN INDICATION
     Dosage: 0.25 ML OF A 20,000 UNIT PER 1 ML VIAL, QWK
     Route: 065

REACTIONS (3)
  - Malaise [Unknown]
  - Peritonitis [Unknown]
  - Peritoneal dialysis [Unknown]
